FAERS Safety Report 18455647 (Version 3)
Quarter: 2020Q4

REPORT INFORMATION
  Report Type: Report from Study
  Country: None (occurrence: US)
  Receive Date: 20201103
  Receipt Date: 20201127
  Transmission Date: 20210114
  Serious: Yes (Hospitalization)
  Sender: FDA-Public Use
  Company Number: US-ABBVIE-20K-163-3631057-00

PATIENT
  Sex: Male

DRUGS (1)
  1. HUMIRA [Suspect]
     Active Substance: ADALIMUMAB
     Indication: HIDRADENITIS
     Dosage: CITRATE FREE
     Route: 058

REACTIONS (13)
  - Skin mass [Not Recovered/Not Resolved]
  - Anxiety [Recovered/Resolved]
  - Sepsis [Recovered/Resolved]
  - Therapeutic product effect incomplete [Unknown]
  - Pain [Recovering/Resolving]
  - Wound haemorrhage [Recovering/Resolving]
  - Cough [Recovering/Resolving]
  - Asthenia [Recovered/Resolved]
  - Chills [Unknown]
  - Pyrexia [Unknown]
  - Hidradenitis [Recovering/Resolving]
  - Back pain [Unknown]
  - Hyperhidrosis [Not Recovered/Not Resolved]
